FAERS Safety Report 16229973 (Version 1)
Quarter: 2019Q2

REPORT INFORMATION
  Report Type: Spontaneous
  Country: US (occurrence: US)
  Receive Date: 20190423
  Receipt Date: 20190423
  Transmission Date: 20190711
  Serious: No
  Sender: FDA-Public Use
  Company Number: US-PURDUE-USA-2019-0146074

PATIENT
  Sex: Male
  Weight: 99.79 kg

DRUGS (2)
  1. OXYCODONE HYDROCHLORIDE. [Suspect]
     Active Substance: OXYCODONE HYDROCHLORIDE
     Indication: PAIN
     Dosage: (2 X 5 MG) 10 MG, QID PRN
     Route: 048
  2. LYRICA [Suspect]
     Active Substance: PREGABALIN
     Indication: NEURALGIA
     Dosage: 50 MG, TID
     Route: 048

REACTIONS (5)
  - Irritability [Recovering/Resolving]
  - Unevaluable event [Recovering/Resolving]
  - Drug ineffective [Unknown]
  - Tension [Recovering/Resolving]
  - Pain in extremity [Recovering/Resolving]
